FAERS Safety Report 9143153 (Version 1)
Quarter: 2013Q1

REPORT INFORMATION
  Report Type: Spontaneous
  Country: US (occurrence: US)
  Receive Date: 20130306
  Receipt Date: 20130306
  Transmission Date: 20140127
  Serious: No
  Sender: FDA-Public Use
  Company Number: US-ENDO PHARMACEUTICALS INC.-OPER20110301

PATIENT
  Sex: Female
  Weight: 59.02 kg

DRUGS (3)
  1. OPANA ER [Suspect]
     Indication: BACK PAIN
     Route: 048
  2. OPANA ER [Suspect]
     Route: 048
  3. FLONASE [Concomitant]
     Indication: PRODUCT USED FOR UNKNOWN INDICATION
     Dosage: UNK
     Route: 045

REACTIONS (2)
  - Drug screen negative [Unknown]
  - Drug ineffective [Unknown]
